FAERS Safety Report 7328191-3 (Version None)
Quarter: 2011Q1

REPORT INFORMATION
  Report Type: 
  Country: None (occurrence: None)
  Receive Date: 20110303
  Receipt Date: 20110303
  Transmission Date: 20110831
  Serious: Yes (Hospitalization)
  Sender: FDA-Public Use
  Company Number: PHHO2008CA09374

PATIENT
  Weight: 73 kg

DRUGS (2)
  1. PLACEBO [Suspect]
     Indication: CARCINOID TUMOUR
     Dosage: PLACEBO
     Route: 048
     Dates: start: 20070518, end: 20080707
  2. SANDOSTATIN LAR [Suspect]
     Indication: CARCINOID SYNDROME
     Dosage: UNK
     Dates: start: 20070518, end: 20080707

REACTIONS (3)
  - PLEURAL EFFUSION [None]
  - ANAEMIA [None]
  - THORACIC CAVITY DRAINAGE [None]
